FAERS Safety Report 6450993-6 (Version None)
Quarter: 2009Q4

REPORT INFORMATION
  Report Type: 
  Country: None (occurrence: None)
  Receive Date: 20091123
  Receipt Date: 20091112
  Transmission Date: 20100525
  Serious: Yes (Hospitalization)
  Sender: FDA-Public Use
  Company Number: B0604113A

PATIENT
  Sex: Female
  Weight: 69.3 kg

DRUGS (3)
  1. LAPATINIB [Suspect]
     Indication: BREAST CANCER
     Dosage: 1250MG PER DAY
     Route: 048
     Dates: start: 20091026
  2. EPIRUBICIN [Suspect]
     Indication: BREAST CANCER
     Dosage: 80MG PER DAY
     Route: 042
     Dates: start: 20091026, end: 20091026
  3. CYCLOPHOSPHAMIDE [Suspect]
     Indication: BREAST CANCER
     Dosage: 1060MG PER DAY
     Route: 042
     Dates: start: 20091026, end: 20091026

REACTIONS (3)
  - FEBRILE NEUTROPENIA [None]
  - INFLUENZA LIKE ILLNESS [None]
  - PYREXIA [None]
